FAERS Safety Report 11699559 (Version 2)
Quarter: 2015Q4

REPORT INFORMATION
  Report Type: Report from Study
  Country: US (occurrence: US)
  Receive Date: 20151105
  Receipt Date: 20151128
  Transmission Date: 20160304
  Serious: Yes (Life-Threatening, Hospitalization)
  Sender: FDA-Public Use
  Company Number: US-AMGEN-USACT2015038028

PATIENT
  Age: 64 Year
  Sex: Female

DRUGS (75)
  1. VICODIN [Concomitant]
     Active Substance: ACETAMINOPHEN\HYDROCODONE BITARTRATE
     Indication: RHEUMATOID ARTHRITIS
     Dosage: 5 MG, AS NEEDED
     Route: 048
     Dates: start: 20120321, end: 201204
  2. IMODIUM A-D [Concomitant]
     Active Substance: LOPERAMIDE HYDROCHLORIDE
     Indication: RHEUMATOID ARTHRITIS
     Dosage: 2 TABLETS (1 IN 1 D)
     Route: 048
     Dates: start: 20131119, end: 20131120
  3. NEOSPORIN [Concomitant]
     Active Substance: BACITRACIN ZINC\NEOMYCIN SULFATE\POLYMYXIN B SULFATE
     Dosage: AS NEEDED
     Route: 061
     Dates: start: 20140410
  4. LEVOFLOXACIN. [Concomitant]
     Active Substance: LEVOFLOXACIN
     Dosage: 500 MG, QD
     Route: 048
  5. VISTARIL [Concomitant]
     Active Substance: HYDROXYZINE PAMOATE
     Dosage: 50 UNIT NOT REPORTED
     Route: 048
  6. ATORVASTATIN [Concomitant]
     Active Substance: ATORVASTATIN
     Indication: HYPERLIPIDAEMIA
     Dosage: 40 MG, 1 IN 1 D
     Route: 048
     Dates: start: 20150312
  7. HYDRALAZINE [Concomitant]
     Active Substance: HYDRALAZINE HYDROCHLORIDE
     Dosage: 30 MG, UNK
     Route: 048
     Dates: start: 20150922, end: 20150928
  8. TRAZODONE HYDROCHLORIDE. [Concomitant]
     Active Substance: TRAZODONE HYDROCHLORIDE
     Dosage: 1 TABLET ONCE A DAY
     Route: 048
     Dates: start: 20150921
  9. PREDNISONE. [Concomitant]
     Active Substance: PREDNISONE
     Dosage: 10 MG, AS NECESSARY
     Route: 048
     Dates: start: 201205
  10. METFORMIN HYDROCHLORIDE. [Concomitant]
     Active Substance: METFORMIN HYDROCHLORIDE
     Indication: DIABETES MELLITUS
     Dosage: 1000 UNK, UNK
     Route: 048
  11. METOPROLOL SUCCINATE. [Concomitant]
     Active Substance: METOPROLOL SUCCINATE
     Indication: HYPERTENSION
     Dosage: 25 MG, 1 IN 1 D
     Route: 048
     Dates: start: 1996
  12. TYLENOL [Concomitant]
     Active Substance: ACETAMINOPHEN
     Indication: RHEUMATOID ARTHRITIS
     Dosage: 500 MG, AS NEEDED
     Route: 048
     Dates: start: 2010
  13. CIPRO                              /00697201/ [Concomitant]
     Active Substance: CIPROFLOXACIN
     Indication: STAPHYLOCOCCAL INFECTION
     Dosage: 1 TAB (2 IN 1 D)
     Route: 048
     Dates: start: 20140410, end: 20140411
  14. CLINDAMYCIN [Concomitant]
     Active Substance: CLINDAMYCIN\CLINDAMYCIN PHOSPHATE
     Indication: STAPHYLOCOCCAL INFECTION
     Dosage: 900 MG, SINGLE DOSE
     Route: 042
     Dates: start: 20140410, end: 20140411
  15. ZYVOX [Concomitant]
     Active Substance: LINEZOLID
     Indication: STAPHYLOCOCCAL INFECTION
     Dosage: 600 MG, 1 IN 1 D
     Route: 042
     Dates: start: 20140413, end: 20140416
  16. AUGMENTIN [Concomitant]
     Active Substance: AMOXICILLIN\CLAVULANATE POTASSIUM
     Dosage: 825 MG, 2 IN 1 D
     Route: 048
     Dates: start: 20141221, end: 20141228
  17. AUGMENTIN [Concomitant]
     Active Substance: AMOXICILLIN\CLAVULANATE POTASSIUM
     Dosage: 825 UNK, 2 IN 1 D
     Route: 048
     Dates: start: 20141224, end: 20150122
  18. AMOXICILLIN. [Concomitant]
     Active Substance: AMOXICILLIN
     Indication: OTITIS MEDIA
     Dosage: UNK UNK, BID
     Route: 048
     Dates: start: 20150810, end: 20150820
  19. CEFTRIAXONE. [Concomitant]
     Active Substance: CEFTRIAXONE
     Dosage: 1 G, UNK 1 IN 1 DAY
     Route: 048
     Dates: start: 20150925, end: 20150930
  20. PREDNISONE. [Concomitant]
     Active Substance: PREDNISONE
     Dosage: 20 MG, QD
     Route: 048
     Dates: start: 20110608, end: 20110614
  21. PREDNISONE. [Concomitant]
     Active Substance: PREDNISONE
     Dosage: 10 MG, QD
     Route: 048
     Dates: start: 20110312, end: 20110317
  22. INSULIN GLARGINE [Concomitant]
     Active Substance: INSULIN GLARGINE
     Indication: TYPE 2 DIABETES MELLITUS
     Dosage: 100 UNK, UNK
     Route: 058
     Dates: start: 2008, end: 20140415
  23. PERCOCET [Concomitant]
     Active Substance: ACETAMINOPHEN\OXYCODONE HYDROCHLORIDE
     Indication: STAPHYLOCOCCAL INFECTION
     Dosage: 5 MG, AS NEEDED
     Route: 048
     Dates: start: 20140411, end: 20140414
  24. KEFLEX [Concomitant]
     Active Substance: CEPHALEXIN
     Indication: STAPHYLOCOCCAL INFECTION
     Dosage: 240 MG, 3 IN 1 D)
     Route: 048
     Dates: start: 20140414, end: 20140414
  25. INSULIN DETEMIR [Concomitant]
     Active Substance: INSULIN DETEMIR
     Dosage: 30 MG, 2 IN 1 D
     Route: 058
     Dates: start: 20140416
  26. ROSUVASTATIN [Concomitant]
     Active Substance: ROSUVASTATIN
     Indication: HYPERLIPIDAEMIA
     Dosage: 20 MG, 1 IN 1 D
     Dates: start: 20150312
  27. VITAMIN D                          /00107901/ [Concomitant]
     Active Substance: ERGOCALCIFEROL
     Dosage: UNK
  28. INSULIN REGULAR                    /01223201/ [Concomitant]
     Active Substance: INSULIN BEEF
     Dosage: 10 IU, UNK
     Route: 058
     Dates: start: 20150921, end: 20150921
  29. CEFTRIAXONE. [Concomitant]
     Active Substance: CEFTRIAXONE
     Dosage: 1 G, UNK 1 IN 1 DAY
     Route: 042
     Dates: start: 20150922, end: 20150924
  30. PREDNISONE. [Concomitant]
     Active Substance: PREDNISONE
     Indication: RHEUMATOID ARTHRITIS
     Dosage: 10 MG, QD
     Route: 048
     Dates: start: 20120321, end: 20120421
  31. PREDNISONE. [Concomitant]
     Active Substance: PREDNISONE
     Dosage: 20 MG, QD
     Route: 048
     Dates: start: 20110305, end: 20110311
  32. TYLENOL [Concomitant]
     Active Substance: ACETAMINOPHEN
     Dosage: 500 MG, AS NEEDED
     Route: 048
     Dates: start: 20140414
  33. CEFUROXIME. [Concomitant]
     Active Substance: CEFUROXIME
     Dosage: 500 MG, 2 IN 1 D
     Route: 048
     Dates: start: 20140218
  34. CEFAZOLIN [Concomitant]
     Active Substance: CEFAZOLIN
     Indication: STAPHYLOCOCCAL INFECTION
     Dosage: 1 TABLET
     Route: 048
     Dates: start: 20140414, end: 20140414
  35. VALACICLOVIR [Concomitant]
     Active Substance: VALACYCLOVIR HYDROCHLORIDE
     Dosage: 1 UNK, 1 TAB (1 IN 1 D)
     Route: 048
     Dates: start: 20140616
  36. ZOLOFT [Concomitant]
     Active Substance: SERTRALINE HYDROCHLORIDE
     Dosage: 25 MG, 1 IN 1 D
     Route: 048
     Dates: start: 20141006
  37. INSULIN [Concomitant]
     Active Substance: INSULIN NOS
     Dosage: 0.1 ML, 4 IN 1 D
     Route: 058
     Dates: start: 20150312
  38. MUCINEX [Concomitant]
     Active Substance: GUAIFENESIN
     Dosage: 2 ML, AS NEEDED)
     Route: 048
     Dates: start: 20130201, end: 20130212
  39. OXYCODONE [Concomitant]
     Active Substance: OXYCODONE
     Dosage: 1 TAB (AS NEEDED)
     Route: 048
     Dates: start: 20130215, end: 20130315
  40. LASIX [Concomitant]
     Active Substance: FUROSEMIDE
     Indication: PULMONARY OEDEMA
     Dosage: 20 MG, 2 IN 1 D
     Route: 042
     Dates: start: 20150420, end: 20150425
  41. DEXTROSE. [Concomitant]
     Active Substance: DEXTROSE
     Dosage: 50 PERCENT IN WATER
     Dates: start: 20150921, end: 20150921
  42. KAYEXALATE [Concomitant]
     Active Substance: SODIUM POLYSTYRENE SULFONATE
     Dosage: 10 G, UNK
     Route: 048
     Dates: start: 20150921, end: 20150921
  43. HYDROXYCHLOROQUINE SULFATE. [Concomitant]
     Active Substance: HYDROXYCHLOROQUINE SULFATE
     Indication: RHEUMATOID ARTHRITIS
     Dosage: 200 MG, QD
     Route: 048
     Dates: start: 201008
  44. FOLIC ACID. [Concomitant]
     Active Substance: FOLIC ACID
     Dosage: 1 MG, QD
     Route: 048
     Dates: start: 201008
  45. IBUPROFEN. [Concomitant]
     Active Substance: IBUPROFEN
     Indication: RHEUMATOID ARTHRITIS
     Dosage: 200 MG, AS NEEDED
     Route: 048
     Dates: start: 2010
  46. HEPARIN [Concomitant]
     Active Substance: HEPARIN SODIUM
     Indication: STAPHYLOCOCCAL INFECTION
     Dosage: 5000 UNITS (3 IN 1 D)
     Route: 058
     Dates: start: 20140411, end: 20140413
  47. TRAMADOL. [Concomitant]
     Active Substance: TRAMADOL
     Indication: STAPHYLOCOCCAL INFECTION
     Dosage: 50 MG, AS NEEDED
     Route: 048
     Dates: start: 20140414, end: 20140416
  48. INSULIN ASPART [Concomitant]
     Active Substance: INSULIN ASPART
     Indication: DIABETES MELLITUS
     Dosage: 10 UNK, THREE TIMES A DAY AND I UNIT AS NEEDED
     Route: 058
     Dates: start: 20140415
  49. BENADRYL [Concomitant]
     Active Substance: DIPHENHYDRAMINE HYDROCHLORIDE
     Dosage: 20 MG, AS NEEDED
     Route: 048
     Dates: start: 20140411, end: 20140416
  50. BETADINE [Concomitant]
     Active Substance: POVIDONE-IODINE
     Dosage: 1 IN 1 D
     Route: 061
     Dates: start: 201411
  51. CALCIUM GLUCONATE. [Concomitant]
     Active Substance: CALCIUM GLUCONATE
     Dosage: 50 G, UNK SINGLE DOSE
     Route: 042
     Dates: start: 20150921, end: 20150921
  52. ETANERCEPT [Suspect]
     Active Substance: ETANERCEPT
     Indication: RHEUMATOID ARTHRITIS
     Dosage: 50 MG, QWK
     Route: 058
  53. METHOTREXATE [Concomitant]
     Active Substance: METHOTREXATE
     Dosage: 25 MG, QWK
     Route: 058
     Dates: start: 20130526
  54. LIDOCAINE. [Concomitant]
     Active Substance: LIDOCAINE
     Indication: RHEUMATOID ARTHRITIS
     Dosage: 1 ML, SINGLE DOSE
     Route: 031
     Dates: start: 20120807, end: 20120807
  55. PREDNISONE. [Concomitant]
     Active Substance: PREDNISONE
     Dosage: 10 MG, UNK
     Route: 048
     Dates: start: 20110615, end: 20110813
  56. PREDNISONE. [Concomitant]
     Active Substance: PREDNISONE
     Dosage: 5 MG, QD
     Route: 048
     Dates: start: 20110318, end: 20110410
  57. ATORVASTATIN CALCIUM. [Concomitant]
     Active Substance: ATORVASTATIN CALCIUM
     Indication: HYPERLIPIDAEMIA
     Dosage: 80 MG, QD
     Route: 048
     Dates: start: 199612
  58. COLESEVELAM HYDROCHLORIDE [Concomitant]
     Active Substance: COLESEVELAM HYDROCHLORIDE
     Dosage: 625 MG, 3 IN 1 D
     Route: 048
     Dates: start: 2011, end: 2011
  59. ASPIRIN                            /00002701/ [Concomitant]
     Active Substance: ASPIRIN
     Indication: CORONARY ARTERY DISEASE
     Dosage: 81 MG, 1 IN 1 D
     Route: 048
     Dates: start: 1996
  60. LINEZOLID. [Concomitant]
     Active Substance: LINEZOLID
     Indication: STAPHYLOCOCCAL INFECTION
     Dosage: 1 UNK, 1 TAB (SINGLE DOSE)
     Route: 048
     Dates: start: 20140413, end: 20140413
  61. MELATONIN [Concomitant]
     Active Substance: MELATONIN
     Dosage: 3 MG, 1 IN 1 D
     Route: 048
     Dates: start: 20150312
  62. LISINOPRIL. [Concomitant]
     Active Substance: LISINOPRIL
     Indication: HYPERTENSION
     Dosage: UNK
     Dates: start: 2010
  63. LISINOPRIL. [Concomitant]
     Active Substance: LISINOPRIL
     Dosage: 10 MG, EVERYDAY
     Route: 048
     Dates: start: 201504
  64. SODIUM CHLORIDE. [Concomitant]
     Active Substance: SODIUM CHLORIDE
     Dosage: 1000 ML, UNK 1 IN 1 DAY
     Route: 042
     Dates: start: 20150921, end: 20150921
  65. METHOTREXATE [Concomitant]
     Active Substance: METHOTREXATE
     Dosage: 20 MG, QWK
     Route: 048
     Dates: start: 20120322, end: 20120924
  66. LIDOCAINE. [Concomitant]
     Active Substance: LIDOCAINE
     Indication: ARTHRALGIA
  67. LISPRO INSULIN [Concomitant]
     Active Substance: INSULIN LISPRO
     Indication: TYPE 2 DIABETES MELLITUS
     Dosage: 100 UNK, UNK
     Route: 058
     Dates: start: 2005, end: 20140415
  68. DOXYCYCLINE. [Concomitant]
     Active Substance: DOXYCYCLINE
     Indication: STAPHYLOCOCCAL INFECTION
     Dosage: 100 MG, SINGLE DOSE
     Route: 042
     Dates: start: 20140411, end: 20140411
  69. GLUCOPHAGE [Concomitant]
     Active Substance: METFORMIN HYDROCHLORIDE
     Dosage: 1000 MG, 2 IN 1 D
     Route: 048
     Dates: start: 1998
  70. LASIX [Concomitant]
     Active Substance: FUROSEMIDE
     Dosage: 20 MG, QD
     Route: 048
     Dates: start: 20150425
  71. CLONIDINE. [Concomitant]
     Active Substance: CLONIDINE
     Dosage: 0.1 MG, UNK
     Route: 048
     Dates: start: 20150922, end: 20150925
  72. METHOTREXATE [Concomitant]
     Active Substance: METHOTREXATE
     Indication: RHEUMATOID ARTHRITIS
     Dosage: 15 MG, UNK
     Route: 048
     Dates: start: 20120119, end: 20120321
  73. KENALOG [Concomitant]
     Active Substance: TRIAMCINOLONE ACETONIDE
     Indication: RHEUMATOID ARTHRITIS
     Dosage: 40 MG, SINGLE DOSE
     Route: 031
     Dates: start: 20120807, end: 20120807
  74. PREDNISONE. [Concomitant]
     Active Substance: PREDNISONE
     Dosage: 20 MG, QD
     Route: 048
     Dates: start: 20110411, end: 20110425
  75. LEVOFLOXACIN. [Concomitant]
     Active Substance: LEVOFLOXACIN
     Indication: STAPHYLOCOCCAL INFECTION
     Dosage: 40 MG, QD
     Route: 058
     Dates: start: 20140414, end: 20140416

REACTIONS (3)
  - Pneumonia [Recovered/Resolved]
  - Cardiac failure congestive [Unknown]
  - Cardiac failure congestive [Recovered/Resolved]

NARRATIVE: CASE EVENT DATE: 20150311
